FAERS Safety Report 11791709 (Version 1)
Quarter: 2015Q4

REPORT INFORMATION
  Report Type: Spontaneous
  Country: AU (occurrence: AU)
  Receive Date: 20151201
  Receipt Date: 20151201
  Transmission Date: 20160305
  Serious: Yes (Other)
  Sender: FDA-Public Use
  Company Number: AU-BAXTER-2015BAX063717

PATIENT
  Sex: Female

DRUGS (4)
  1. DOXORUBICIN [Suspect]
     Active Substance: DOXORUBICIN
     Indication: UTERINE LEIOMYOSARCOMA
     Dosage: SIX CYCLES
     Route: 065
  2. HOLOXAN IFOSFAMIDE 2G POWDER FOR INJECTION VIAL (OF) [Suspect]
     Active Substance: IFOSFAMIDE
     Indication: METASTASES TO LUNG
  3. HOLOXAN IFOSFAMIDE 2G POWDER FOR INJECTION VIAL (OF) [Suspect]
     Active Substance: IFOSFAMIDE
     Indication: UTERINE LEIOMYOSARCOMA
     Dosage: SIX CYCLES
     Route: 065
  4. DOXORUBICIN [Suspect]
     Active Substance: DOXORUBICIN
     Indication: METASTASES TO LUNG

REACTIONS (1)
  - Leiomyosarcoma recurrent [Unknown]
